FAERS Safety Report 23462051 (Version 1)
Quarter: 2024Q1

REPORT INFORMATION
  Report Type: Spontaneous
  Country: CN (occurrence: CN)
  Receive Date: 20240131
  Receipt Date: 20240131
  Transmission Date: 20240410
  Serious: Yes (Hospitalization, Other)
  Sender: FDA-Public Use
  Company Number: CN-BAYER-2024A014678

PATIENT
  Age: 82 Year
  Sex: Female

DRUGS (2)
  1. XARELTO [Suspect]
     Active Substance: RIVAROXABAN
     Indication: Anticoagulant therapy
     Dosage: 10 MG, QD
     Route: 048
     Dates: start: 20231110, end: 20231226
  2. CLOPIDOGREL BISULFATE [Suspect]
     Active Substance: CLOPIDOGREL BISULFATE
     Indication: Anticoagulant therapy
     Dosage: 75 MG, QD
     Route: 048
     Dates: start: 20231110, end: 20240123

REACTIONS (9)
  - Blood glucose abnormal [Unknown]
  - Diarrhoea haemorrhagic [Recovering/Resolving]
  - Blood loss anaemia [Recovering/Resolving]
  - Labelled drug-drug interaction issue [Unknown]
  - Somnolence [Recovering/Resolving]
  - Gastrointestinal infection [Unknown]
  - Heart rate decreased [Unknown]
  - Hypotension [Unknown]
  - Off label use [Unknown]

NARRATIVE: CASE EVENT DATE: 20231110
